FAERS Safety Report 7069232-0 (Version None)
Quarter: 2010Q4

REPORT INFORMATION
  Report Type: 
  Country: None (occurrence: None)
  Receive Date: 20101028
  Receipt Date: 20101025
  Transmission Date: 20110411
  Serious: Yes (Hospitalization, Other)
  Sender: FDA-Public Use
  Company Number: HQWYE260404JUN04

PATIENT
  Sex: Female
  Weight: 94.89 kg

DRUGS (8)
  1. PREMPRO [Suspect]
     Dosage: UNKNOWN
     Route: 048
  2. PROVERA [Suspect]
     Dosage: UNKNOWN
  3. ESTROPIPATE [Suspect]
     Dosage: UNKNOWN
     Route: 065
  4. CURRETAB [Suspect]
     Dosage: UNKNOWN
  5. MEDROXYPROGESTERONE [Suspect]
     Dosage: UNKNOWN
  6. CLIMARA [Suspect]
     Dosage: UNKNOWN
     Route: 065
  7. PREMARIN [Suspect]
     Dosage: UNKNOWN
     Route: 048
  8. CYCRIN [Suspect]
     Dosage: UNKNOWN
     Route: 048

REACTIONS (1)
  - BREAST CANCER METASTATIC [None]
